FAERS Safety Report 20436788 (Version 1)
Quarter: 2022Q1

REPORT INFORMATION
  Report Type: Spontaneous
  Country: CA (occurrence: CA)
  Receive Date: 20220207
  Receipt Date: 20220207
  Transmission Date: 20220423
  Serious: Yes (Other)
  Sender: FDA-Public Use
  Company Number: CA-STRIDES ARCOLAB LIMITED-2022SP001032

PATIENT
  Age: 14 Year
  Sex: Female

DRUGS (1)
  1. TETRACYCLINE [Suspect]
     Active Substance: TETRACYCLINE
     Indication: Acne
     Dosage: UNK
     Route: 048

REACTIONS (2)
  - Optic neuropathy [Recovered/Resolved]
  - Intracranial pressure increased [Recovered/Resolved]
